FAERS Safety Report 4622634-1 (Version None)
Quarter: 2005Q1

REPORT INFORMATION
  Report Type: 
  Country: None (occurrence: None)
  Receive Date: 20050330
  Receipt Date: 20050318
  Transmission Date: 20050727
  Serious: Yes (Other)
  Sender: FDA-Public Use
  Company Number: BE-JNJFOC-20050203212

PATIENT
  Sex: Male
  Weight: 70 kg

DRUGS (2)
  1. RISPERDAL [Suspect]
     Indication: SCHIZOPHRENIA
     Route: 049
  2. HALDOL [Suspect]
     Indication: DRUG USE FOR UNKNOWN INDICATION
     Dosage: 10 DROPS FOR +-1 YEAR

REACTIONS (3)
  - BENIGN BREAST NEOPLASM [None]
  - HYPERPROLACTINAEMIA [None]
  - PAIN [None]
